FAERS Safety Report 8133188-X (Version None)
Quarter: 2012Q1

REPORT INFORMATION
  Report Type: 
  Country: None (occurrence: None)
  Receive Date: 20120213
  Receipt Date: 20120206
  Transmission Date: 20120608
  Serious: Yes (Other)
  Sender: FDA-Public Use
  Company Number: PHHY2011JP105915

PATIENT
  Age: 68 Year
  Sex: Female

DRUGS (1)
  1. ZOMETA [Suspect]
     Indication: METASTASES TO BONE
     Route: 041

REACTIONS (10)
  - GINGIVAL INFECTION [None]
  - OSTEOMYELITIS [None]
  - SWELLING [None]
  - WOUND SEPSIS [None]
  - IMPAIRED HEALING [None]
  - ASTHENIA [None]
  - PURULENT DISCHARGE [None]
  - PERIOSTITIS [None]
  - PRIMARY SEQUESTRUM [None]
  - PYREXIA [None]
